FAERS Safety Report 8328859-6 (Version None)
Quarter: 2012Q2

REPORT INFORMATION
  Report Type: 
  Country: None (occurrence: None)
  Receive Date: 20120502
  Receipt Date: 20120425
  Transmission Date: 20120825
  Serious: Yes (Hospitalization)
  Sender: FDA-Public Use
  Company Number: PHHY2011CA78088

PATIENT
  Sex: Female

DRUGS (3)
  1. SANDOSTATIN LAR [Suspect]
     Dosage: 20 MG, EVERY 4 WEEKS
     Route: 030
  2. SANDOSTATIN LAR [Suspect]
     Indication: PANCREATITIS CHRONIC
     Dosage: 20 MG, ONCE  A MONTH
     Route: 030
     Dates: start: 20110413, end: 20110830
  3. SANDOSTATIN LAR [Suspect]
     Dosage: 20 MG, ONCE A MONTH
     Route: 030
     Dates: start: 20120314

REACTIONS (2)
  - BLOOD PRESSURE INCREASED [None]
  - PANCREATOLITHIASIS [None]
